FAERS Safety Report 9942446 (Version 3)
Quarter: 2014Q2

REPORT INFORMATION
  Report Type: Spontaneous
  Country: US (occurrence: US)
  Receive Date: 20140303
  Receipt Date: 20140428
  Transmission Date: 20141212
  Serious: Yes (Other)
  Sender: FDA-Public Use
  Company Number: US-TEVA-465845USA

PATIENT
  Sex: Male

DRUGS (2)
  1. DULOXETINE [Suspect]
     Indication: BIPOLAR DISORDER
     Dosage: TOOK 1 PILL
     Route: 048
  2. CLONAZEPAM [Suspect]
     Route: 048

REACTIONS (10)
  - Stevens-Johnson syndrome [Unknown]
  - Anaphylactic reaction [Unknown]
  - Throat tightness [Unknown]
  - Pruritus [Unknown]
  - Scratch [Unknown]
  - Rash [Unknown]
  - Pyrexia [Unknown]
  - Myalgia [Unknown]
  - Blister [Unknown]
  - Drug effect decreased [Unknown]
